FAERS Safety Report 5643453-3 (Version None)
Quarter: 2008Q1

REPORT INFORMATION
  Report Type: 
  Country: None (occurrence: None)
  Receive Date: 20080131
  Receipt Date: 20071220
  Transmission Date: 20080703
  Serious: Yes (Hospitalization)
  Sender: FDA-Public Use
  Company Number: 163-21880-07121182

PATIENT
  Age: 56 Year
  Sex: Male
  Weight: 87.6 kg

DRUGS (3)
  1. REVLIMID [Suspect]
     Indication: MULTIPLE MYELOMA
     Dosage: 25 MG, QD ON DAYS 1-21, EVERY 28 DAYS, ORAL
     Route: 048
     Dates: start: 20060307, end: 20060321
  2. DEXAMETHASONE TAB [Suspect]
     Indication: MULTIPLE MYELOMA
     Dosage: 40 MG, QD ON DAYS 1-4, 9-12, AND 17-20, Q28D, ORAL
     Route: 048
     Dates: start: 20060307, end: 20060318
  3. BISPHOSPHONATES (BISPHOSPHONATES) [Suspect]
     Indication: DRUG USE FOR UNKNOWN INDICATION
     Dates: start: 20070301

REACTIONS (2)
  - FATIGUE [None]
  - HYPOCALCAEMIA [None]
